FAERS Safety Report 25067016 (Version 5)
Quarter: 2025Q2

REPORT INFORMATION
  Report Type: Spontaneous
  Country: JP (occurrence: JP)
  Receive Date: 20250312
  Receipt Date: 20250424
  Transmission Date: 20250716
  Serious: Yes (Death, Disabling, Other)
  Sender: GILEAD
  Company Number: JP-GILEAD-2025-0706633

PATIENT
  Age: 83 Year
  Sex: Male
  Weight: 61.8 kg

DRUGS (3)
  1. VEKLURY [Suspect]
     Active Substance: REMDESIVIR
     Indication: COVID-19
     Route: 041
     Dates: start: 20250306, end: 20250306
  2. VEKLURY [Suspect]
     Active Substance: REMDESIVIR
     Route: 041
     Dates: start: 20250307, end: 20250310
  3. LEVOFLOXACIN HEMIHYDRATE [Concomitant]
     Active Substance: LEVOFLOXACIN
     Indication: Urinary tract infection
     Route: 048
     Dates: end: 20250307

REACTIONS (4)
  - Renal impairment [Fatal]
  - Multiple organ dysfunction syndrome [Fatal]
  - White blood cell count decreased [Recovered/Resolved]
  - Pneumonia aspiration [Fatal]

NARRATIVE: CASE EVENT DATE: 20250307
